FAERS Safety Report 18709358 (Version 2)
Quarter: 2021Q2

REPORT INFORMATION
  Report Type: Spontaneous
  Country: US (occurrence: US)
  Receive Date: 20210107
  Receipt Date: 20210429
  Transmission Date: 20210717
  Serious: Yes (Death, Life-Threatening, Hospitalization, Other)
  Sender: FDA-Public Use
  Company Number: US-DRREDDYS-USA/USA/20/0130576

PATIENT
  Age: 80 Year
  Sex: Male

DRUGS (1)
  1. FLUCONAZOLE 200 MG [Suspect]
     Active Substance: FLUCONAZOLE
     Indication: PRODUCT USED FOR UNKNOWN INDICATION
     Dosage: THE MEDIC ZOLEATION WAS STOPPED AFTER THREE DOSES.

REACTIONS (7)
  - Coagulopathy [Fatal]
  - Acute kidney injury [Fatal]
  - Hepatic encephalopathy [Fatal]
  - Drug-induced liver injury [Fatal]
  - Hepatic cyst [Fatal]
  - Rash [Unknown]
  - Acute hepatic failure [Fatal]
